FAERS Safety Report 23762239 (Version 2)
Quarter: 2024Q2

REPORT INFORMATION
  Report Type: Spontaneous
  Country: ES (occurrence: ES)
  Receive Date: 20240419
  Receipt Date: 20240425
  Transmission Date: 20240716
  Serious: Yes (Other)
  Sender: FDA-Public Use
  Company Number: ES-GLAXOSMITHKLINE-ES2024GSK039732

PATIENT
  Age: 42 Year
  Sex: Female

DRUGS (4)
  1. LAMOTRIGINE [Suspect]
     Active Substance: LAMOTRIGINE
     Indication: Product used for unknown indication
     Dosage: UNK
     Route: 065
  2. ASENAPINE [Suspect]
     Active Substance: ASENAPINE
     Indication: Anxiety
     Dosage: 15 MILLIGRAM, QD,(15 MG, 1D)
     Route: 065
  3. ASENAPINE [Suspect]
     Active Substance: ASENAPINE
     Indication: Insomnia
     Dosage: 10 MILLIGRAM, QD,(10 MG,1D)
     Route: 065
  4. LITHIUM [Suspect]
     Active Substance: LITHIUM
     Indication: Bipolar disorder
     Dosage: 1200 MILLIGRAM, QD,(1200 MG,1D)
     Route: 065

REACTIONS (6)
  - Nephrogenic diabetes insipidus [Recovering/Resolving]
  - Polyhydramnios [Recovering/Resolving]
  - Premature delivery [Unknown]
  - Polydipsia [Recovering/Resolving]
  - Dry mouth [Recovering/Resolving]
  - Exposure during pregnancy [Unknown]
